FAERS Safety Report 14483517 (Version 1)
Quarter: 2018Q1

REPORT INFORMATION
  Report Type: Spontaneous
  Country: US (occurrence: US)
  Receive Date: 20180204
  Receipt Date: 20180204
  Transmission Date: 20180509
  Serious: No
  Sender: FDA-Public Use
  Company Number: US-009507513-1801USA009639

PATIENT
  Age: 72 Year
  Sex: Male

DRUGS (1)
  1. FOSAMAX [Suspect]
     Active Substance: ALENDRONATE SODIUM
     Indication: BONE DENSITY DECREASED
     Dosage: 70 MG, ONCE WEEKLY
     Route: 048

REACTIONS (1)
  - Wrong technique in product usage process [Unknown]

NARRATIVE: CASE EVENT DATE: 20180123
